FAERS Safety Report 4805425-8 (Version None)
Quarter: 2005Q4

REPORT INFORMATION
  Report Type: 
  Country: None (occurrence: None)
  Receive Date: 20051018
  Receipt Date: 20051006
  Transmission Date: 20060501
  Serious: Yes (Hospitalization)
  Sender: FDA-Public Use
  Company Number: 2005140014

PATIENT
  Age: 63 Year
  Sex: Male

DRUGS (7)
  1. SOLU-MEDROL [Suspect]
     Indication: ILL-DEFINED DISORDER
     Dosage: 80 MG (1 IN 1 D), INTRAVENOUS
     Route: 042
     Dates: start: 20050524, end: 20050707
  2. AUGMENTIN '125' [Suspect]
     Indication: ILL-DEFINED DISORDER
     Dosage: 3 GRAM (3 IN 1 D), ORAL
     Route: 048
     Dates: start: 20050516, end: 20050625
  3. ZOFRAN [Suspect]
     Indication: ILL-DEFINED DISORDER
     Dosage: 8 MG (1 IN 1 D), ORAL
     Route: 048
     Dates: start: 20050524, end: 20050707
  4. AMIFOSTINE (AMIFOSTINE) [Suspect]
     Indication: PROPHYLAXIS
     Dosage: SUBCUTANEOUS
     Route: 058
     Dates: start: 20050524, end: 20050707
  5. TENORDATE (ATENOLOL, NIFEDIPINE) [Concomitant]
  6. ALLOPURINOL [Concomitant]
  7. EXIDREX (HYDROCHLOROTHIAZIDE) [Concomitant]

REACTIONS (4)
  - ASTHENIA [None]
  - BODY TEMPERATURE DECREASED [None]
  - STEVENS-JOHNSON SYNDROME [None]
  - TOXIC EPIDERMAL NECROLYSIS [None]
